FAERS Safety Report 5092159-0 (Version None)
Quarter: 2006Q3

REPORT INFORMATION
  Report Type: 
  Country: None (occurrence: None)
  Receive Date: 20060828
  Receipt Date: 20060828
  Transmission Date: 20061208
  Serious: Yes (Congenital Anomaly)
  Sender: FDA-Public Use
  Company Number: None

PATIENT
  Sex: Female
  Weight: 59.8748 kg

DRUGS (2)
  1. FELBATOL [Suspect]
     Indication: CONVULSION
     Dosage: 600 MG ORAL TAB TAKE TWO AND ONE. H PO
     Route: 048
     Dates: start: 20050930, end: 20051001
  2. FELBAMATE [Concomitant]

REACTIONS (2)
  - ANENCEPHALY [None]
  - DRUG EXPOSURE DURING PREGNANCY [None]
